FAERS Safety Report 7535687-8 (Version None)
Quarter: 2011Q2

REPORT INFORMATION
  Report Type: 
  Country: None (occurrence: None)
  Receive Date: 20110602
  Receipt Date: 20110523
  Transmission Date: 20111010
  Serious: Yes (Hospitalization)
  Sender: FDA-Public Use
  Company Number: 2011050208

PATIENT
  Age: 75 Year
  Sex: Female
  Weight: 81.1939 kg

DRUGS (22)
  1. VISIPAQUE [Suspect]
     Indication: ANGIOGRAM
     Dosage: 265 MILLILITER, IV
     Route: 042
     Dates: start: 20110317, end: 20110317
  2. CANGRELOR VS. CLOPIDOGREL VS. PLACEBO (CODE NOT BROKEN)CAPSULE [Suspect]
     Indication: PERCUTANEOUS CORONARY INTERVENTION
     Dosage: 6.2; 48.6 MILLILITER, INTRAVENOUS BOLUS; 4 LOADING DOSER CAPSULES, ORAL, 4 CAPSULES POST-INFUSION, O
     Route: 040
     Dates: start: 20110317, end: 20110317
  3. ALLOPURINOL [Concomitant]
  4. GABAPENTIN [Interacting]
  5. METOPROLOL TARTRATE [Concomitant]
  6. NITROGLYCERIN [Concomitant]
  7. DILTIAZEM [Concomitant]
  8. METFORMIN HCL [Concomitant]
  9. TORSEMIDE [Suspect]
     Indication: CARDIAC FAILURE CONGESTIVE
     Dosage: 20 MG (20 MG, 1 IN 1 D), ORAL
     Route: 048
     Dates: start: 20110303, end: 20110319
  10. METOLAZONE [Suspect]
     Indication: CARDIAC FAILURE CONGESTIVE
     Dosage: 2.5 MG (2.5 MG, 1 IN 1 D), ORAL
     Route: 048
     Dates: start: 20110303, end: 20110319
  11. NAPROXEN SODIUM [Suspect]
     Indication: MUSCULOSKELETAL PAIN
     Dosage: 1000 MG (500 MG, 2 IN 1 D), ORAL
     Route: 048
     Dates: start: 20110303, end: 20110318
  12. ALBUTEROL SULFATE AUTOHALER [Concomitant]
  13. POTASSIUM CHLORIDE [Concomitant]
  14. ROPINIROLE [Concomitant]
  15. TIOTROPIUM (TIOTROPIUM) [Concomitant]
  16. WARFARIN SODIUM [Concomitant]
  17. HEPARIN [Concomitant]
  18. CLOPIDOGREL [Concomitant]
  19. GLIPIZIDE [Concomitant]
  20. SIMVASTATIN [Concomitant]
  21. ASPIRIN [Concomitant]
  22. BIVALIRUDIN (BIVALIRUDIN) [Concomitant]

REACTIONS (5)
  - TROPONIN INCREASED [None]
  - RENAL FAILURE ACUTE [None]
  - DIARRHOEA [None]
  - CORONARY ARTERY STENOSIS [None]
  - CHEST PAIN [None]
